FAERS Safety Report 7397972-2 (Version None)
Quarter: 2011Q2

REPORT INFORMATION
  Report Type: 
  Country: None (occurrence: None)
  Receive Date: 20110406
  Receipt Date: 20110318
  Transmission Date: 20111010
  Serious: Yes (Other)
  Sender: FDA-Public Use
  Company Number: PHHO2011PL04216

PATIENT
  Sex: Female
  Weight: 67.3 kg

DRUGS (2)
  1. FTY 720 [Suspect]
     Dosage: DOSE BLINDED
     Dates: start: 20090520, end: 20100510
  2. FTY 720 [Suspect]
     Dosage: 0.5 MG, QD
     Route: 048
     Dates: start: 20100511, end: 20110305

REACTIONS (1)
  - MENINGIOMA [None]
